FAERS Safety Report 9727942 (Version 3)
Quarter: 2014Q1

REPORT INFORMATION
  Report Type: Spontaneous
  Country: US (occurrence: US)
  Receive Date: 20131204
  Receipt Date: 20140129
  Transmission Date: 20141002
  Serious: Yes (Hospitalization)
  Sender: FDA-Public Use
  Company Number: US-BIOGENIDEC-2013BI115484

PATIENT
  Age: 33 Year
  Sex: Female

DRUGS (5)
  1. AVONEX [Suspect]
     Indication: MULTIPLE SCLEROSIS
     Route: 030
  2. AVONEX [Suspect]
     Indication: MULTIPLE SCLEROSIS
     Route: 030
     Dates: start: 20130327
  3. AMBIEN [Concomitant]
  4. SOMA [Concomitant]
  5. TRAZODONE HCL [Concomitant]

REACTIONS (2)
  - Multiple sclerosis relapse [Not Recovered/Not Resolved]
  - Convulsion [Unknown]
